FAERS Safety Report 23973493 (Version 1)
Quarter: 2024Q2

REPORT INFORMATION
  Report Type: Other
  Country: US (occurrence: US)
  Receive Date: 20240613
  Receipt Date: 20240613
  Transmission Date: 20240716
  Serious: Yes (Hospitalization, Other)
  Sender: FDA-Public Use
  Company Number: US-UROVANT SCIENCES GMBH-202406-URV-000836

PATIENT
  Age: 80 Year
  Sex: Female

DRUGS (1)
  1. GEMTESA [Suspect]
     Active Substance: VIBEGRON
     Indication: Hypertonic bladder
     Dosage: 1 DOSAGE FORM, QD
     Route: 065

REACTIONS (3)
  - Dehydration [Unknown]
  - Renal failure [Unknown]
  - Renal function test abnormal [Unknown]
